FAERS Safety Report 11871308 (Version 1)
Quarter: 2015Q4

REPORT INFORMATION
  Report Type: Spontaneous
  Country: AU (occurrence: AU)
  Receive Date: 20151228
  Receipt Date: 20151228
  Transmission Date: 20160305
  Serious: Yes (Life-Threatening)
  Sender: FDA-Public Use
  Company Number: AU-MYLANLABS-2015M1047105

PATIENT

DRUGS (1)
  1. FLUOROURACIL. [Suspect]
     Active Substance: FLUOROURACIL
     Indication: PRODUCT USED FOR UNKNOWN INDICATION
     Dosage: 650 MG/M2 ON DAY 2-6 POST SURGERY
     Route: 033

REACTIONS (2)
  - Enterocolitis [Recovered/Resolved]
  - Rectal haemorrhage [Recovered/Resolved]
